FAERS Safety Report 21154257 (Version 2)
Quarter: 2022Q3

REPORT INFORMATION
  Report Type: Report from Study
  Country: US (occurrence: US)
  Receive Date: 20220801
  Receipt Date: 20220824
  Transmission Date: 20221027
  Serious: Yes (Other)
  Sender: FDA-Public Use
  Company Number: US-ORGANON-O2207USA002231

PATIENT
  Sex: Female

DRUGS (1)
  1. IMPLANON [Suspect]
     Active Substance: ETONOGESTREL
     Dosage: STRENTGH: 68 MILLIGRAM, 1 IMPLANT, EVERY 3 YEARS
     Route: 059
     Dates: start: 20211108

REACTIONS (2)
  - Device expulsion [Not Recovered/Not Resolved]
  - Implant site infection [Recovering/Resolving]

NARRATIVE: CASE EVENT DATE: 20210101
